FAERS Safety Report 5640932-X (Version None)
Quarter: 2008Q1

REPORT INFORMATION
  Report Type: 
  Country: None (occurrence: None)
  Receive Date: 20080227
  Receipt Date: 20080215
  Transmission Date: 20080703
  Serious: Yes (Other)
  Sender: FDA-Public Use
  Company Number: BR-ROCHE-548235

PATIENT
  Age: 26 Year
  Sex: Female
  Weight: 43 kg

DRUGS (2)
  1. ROACUTAN [Suspect]
     Indication: ACNE
     Route: 048
     Dates: start: 20070601, end: 20080101
  2. ISOTRETINOIN [Suspect]
     Indication: ACNE
     Route: 048
     Dates: start: 20070401, end: 20070501

REACTIONS (3)
  - ANXIETY [None]
  - ILL-DEFINED DISORDER [None]
  - PATELLOFEMORAL PAIN SYNDROME [None]
